FAERS Safety Report 5133247-X (Version None)
Quarter: 2006Q4

REPORT INFORMATION
  Report Type: 
  Country: None (occurrence: None)
  Receive Date: 20061018
  Receipt Date: 20061005
  Transmission Date: 20070319
  Serious: Yes (Death, Hospitalization)
  Sender: FDA-Public Use
  Company Number: 2006104737

PATIENT
  Age: 63 Year
  Sex: Male
  Weight: 45.6 kg

DRUGS (16)
  1. DIFLUCAN [Suspect]
     Indication: CANDIDA PNEUMONIA
     Dosage: 200 MG (100 MG, 2 IN 1 D), ORAL
     Route: 048
     Dates: start: 20060816, end: 20060818
  2. VFEND [Suspect]
     Indication: BRONCHOPULMONARY ASPERGILLOSIS
     Dosage: 400 MG (200 MG, 2 IN 1 D), ORAL
     Route: 048
     Dates: start: 20060818, end: 20060823
  3. BACTRIM [Suspect]
     Indication: PNEUMOCYSTIS JIROVECI PNEUMONIA
     Dosage: 1TAB (1 IN 1 D), ORAL
     Route: 048
     Dates: start: 20060808, end: 20060823
  4. ISONIAZID [Suspect]
     Indication: ANTIBIOTIC PROPHYLAXIS
     Dosage: 0.3 GRAM (0.3 GRAM, 1 IN 1 D), ORAL
     Route: 048
     Dates: start: 20060808, end: 20060823
  5. DECADRON [Concomitant]
  6. FAMOTIDINE [Concomitant]
  7. LASIX [Concomitant]
  8. FOY (GABEXATE MESILATE) [Concomitant]
  9. IRESSA [Concomitant]
  10. PURSENNID (SENNA LEAF) [Concomitant]
  11. MAGNESIUM OXIDE [Concomitant]
  12. PANTOSIN (PANTETHINE) [Concomitant]
  13. BETAMETHASONE [Concomitant]
  14. SODIUM CHLORIDE [Concomitant]
  15. BUP-4 (PROPIVERINE HYDROCHLORIDE) [Concomitant]
  16. AUGMENTIN '125' [Concomitant]

REACTIONS (10)
  - ACUTE PRERENAL FAILURE [None]
  - BLOOD DISORDER [None]
  - BRONCHOPULMONARY ASPERGILLOSIS [None]
  - CANDIDA PNEUMONIA [None]
  - DEHYDRATION [None]
  - DISSEMINATED INTRAVASCULAR COAGULATION [None]
  - HEPATIC ENZYME INCREASED [None]
  - HEPATIC FUNCTION ABNORMAL [None]
  - STAPHYLOCOCCAL SEPSIS [None]
  - THROMBOCYTOPENIA [None]
